FAERS Safety Report 4774149-8 (Version None)
Quarter: 2005Q3

REPORT INFORMATION
  Report Type: 
  Country: None (occurrence: None)
  Receive Date: 20050921
  Receipt Date: 20050912
  Transmission Date: 20060218
  Serious: Yes (Other)
  Sender: FDA-Public Use
  Company Number: ZA-SOLVAY-00305002934

PATIENT
  Sex: Female

DRUGS (2)
  1. LUVOX 100 [Suspect]
     Indication: POSTPARTUM DEPRESSION
     Dosage: DAILY DOSE: 100 MILLIGRAM(S)
     Route: 048
     Dates: start: 20050101, end: 20050101
  2. LUVOX 100 [Suspect]
     Dosage: DAILY DOSE: 300 MILLIGRAM(S), 100 MG IN THE MORNING, 200 MG IN THE EVENING
     Route: 048
     Dates: start: 20050908

REACTIONS (3)
  - COGNITIVE DISORDER [None]
  - HYPOAESTHESIA ORAL [None]
  - TONGUE OEDEMA [None]
